FAERS Safety Report 8187088-X (Version None)
Quarter: 2012Q1

REPORT INFORMATION
  Report Type: 
  Country: None (occurrence: None)
  Receive Date: 20120301
  Receipt Date: 20120221
  Transmission Date: 20120608
  Serious: Yes (Hospitalization)
  Sender: FDA-Public Use
  Company Number: 2011SP040934

PATIENT
  Age: 26 Year
  Sex: Female
  Weight: 108.4097 kg

DRUGS (1)
  1. NUVARING [Suspect]
     Indication: CONTRACEPTION
     Dosage: ;VAG
     Route: 067
     Dates: start: 20080801, end: 20080921

REACTIONS (42)
  - ERUCTATION [None]
  - DIARRHOEA [None]
  - MATERNAL EXPOSURE BEFORE PREGNANCY [None]
  - HYPOKALAEMIA [None]
  - URINARY TRACT INFECTION [None]
  - MUSCLE STRAIN [None]
  - MYALGIA [None]
  - ANGINA PECTORIS [None]
  - PULMONARY PNEUMATOCELE [None]
  - BACK PAIN [None]
  - CHEST DISCOMFORT [None]
  - ABDOMINAL PAIN [None]
  - NODULE [None]
  - COUGH [None]
  - SCIATICA [None]
  - BRONCHIECTASIS [None]
  - NAUSEA [None]
  - VOMITING [None]
  - UPPER RESPIRATORY TRACT INFECTION [None]
  - MATERNAL EXPOSURE DURING PREGNANCY [None]
  - PULMONARY EMBOLISM [None]
  - CONTUSION [None]
  - BRONCHITIS [None]
  - DIABETES MELLITUS [None]
  - PREGNANCY [None]
  - UTERINE CONTRACTIONS DURING PREGNANCY [None]
  - INTERNATIONAL NORMALISED RATIO DECREASED [None]
  - MOUTH CYST [None]
  - FLANK PAIN [None]
  - GASTROOESOPHAGEAL REFLUX DISEASE [None]
  - FEELING ABNORMAL [None]
  - POLYP [None]
  - PAIN IN EXTREMITY [None]
  - DEEP VEIN THROMBOSIS [None]
  - DYSPNOEA [None]
  - MUSCULOSKELETAL CHEST PAIN [None]
  - DYSPEPSIA [None]
  - RHINORRHOEA [None]
  - PAIN [None]
  - MUSCULOSKELETAL DISCOMFORT [None]
  - NEPHROLITHIASIS [None]
  - CONDITION AGGRAVATED [None]
